FAERS Safety Report 5619681-X (Version None)
Quarter: 2008Q1

REPORT INFORMATION
  Report Type: 
  Country: None (occurrence: None)
  Receive Date: 20080208
  Receipt Date: 20080130
  Transmission Date: 20080703
  Serious: Yes (Other)
  Sender: FDA-Public Use
  Company Number: CA-BRACCO-000004

PATIENT
  Age: 27 Year
  Sex: Female

DRUGS (2)
  1. MULTIHANCE [Suspect]
     Indication: ARTHROGRAM
     Dosage: DILUTED IN STERILE SALINE PRIOR TO ADMINISTRATION
     Route: 014
     Dates: start: 20080125, end: 20080125
  2. MULTIHANCE [Suspect]
     Indication: HUMERUS FRACTURE
     Dosage: DILUTED IN STERILE SALINE PRIOR TO ADMINISTRATION
     Route: 014
     Dates: start: 20080125, end: 20080125

REACTIONS (1)
  - ARTHRITIS INFECTIVE [None]
